FAERS Safety Report 6022476-9 (Version None)
Quarter: 2008Q4

REPORT INFORMATION
  Report Type: 
  Country: None (occurrence: None)
  Receive Date: 20081221
  Receipt Date: 20081221
  Transmission Date: 20090506
  Serious: Yes (Hospitalization)
  Sender: FDA-Public Use
  Company Number: None

PATIENT
  Sex: Female
  Weight: 78.2 kg

DRUGS (5)
  1. ABRAXANE [Suspect]
     Indication: SMALL CELL LUNG CANCER STAGE UNSPECIFIED
     Dosage: 189 MG D1,D8,D15/CYCLE 042
     Dates: start: 20080711, end: 20081121
  2. VANDETANIB [Suspect]
     Indication: SMALL CELL LUNG CANCER STAGE UNSPECIFIED
     Dosage: 100 MG QD X 28 DAYS 047
     Dates: start: 20080711, end: 20081204
  3. ATENOLOL [Concomitant]
  4. EEMT ESTROGEN [Concomitant]
  5. HYDROCODONE BITARTRATE [Concomitant]

REACTIONS (7)
  - APHASIA [None]
  - DISEASE PROGRESSION [None]
  - DYSPHASIA [None]
  - HYPOAESTHESIA [None]
  - HYPOAESTHESIA FACIAL [None]
  - METASTASES TO CENTRAL NERVOUS SYSTEM [None]
  - POSTICTAL STATE [None]
